FAERS Safety Report 20007488 (Version 2)
Quarter: 2021Q4

REPORT INFORMATION
  Report Type: Spontaneous
  Country: US (occurrence: US)
  Receive Date: 20211028
  Receipt Date: 20211112
  Transmission Date: 20220303
  Serious: Yes (Other)
  Sender: FDA-Public Use
  Company Number: US-PFIZER INC-202101393343

PATIENT
  Sex: Male

DRUGS (3)
  1. IFOSFAMIDE [Suspect]
     Active Substance: IFOSFAMIDE
     Indication: Synovial sarcoma
     Dosage: 2 G/M2 OVER 4 H, CYCLIC
     Route: 064
  2. IFOSFAMIDE [Suspect]
     Active Substance: IFOSFAMIDE
     Dosage: 2 G/M2/DAY CONTINUOUS IV FOR 6 DAYS (TOTAL DOSE 14 G/M2/CYCLE), CYCLIC
     Route: 064
  3. MESNA [Suspect]
     Active Substance: MESNA
     Indication: Synovial sarcoma
     Dosage: UNK UNK, CYCLIC
     Route: 064

REACTIONS (2)
  - Maternal exposure during pregnancy [Unknown]
  - Premature baby [Unknown]
